FAERS Safety Report 11752851 (Version 2)
Quarter: 2015Q4

REPORT INFORMATION
  Report Type: Report from Study
  Country: US (occurrence: US)
  Receive Date: 20151119
  Receipt Date: 20151224
  Transmission Date: 20160304
  Serious: Yes (Other)
  Sender: FDA-Public Use
  Company Number: US-AMGEN-USASL2015121697

PATIENT
  Age: 53 Year
  Sex: Male

DRUGS (1)
  1. ENBREL [Suspect]
     Active Substance: ETANERCEPT
     Indication: RHEUMATOID ARTHRITIS
     Dosage: UNK
     Route: 065
     Dates: start: 20151106

REACTIONS (12)
  - Asthenia [Unknown]
  - Muscle rupture [Not Recovered/Not Resolved]
  - Rash [Recovered/Resolved]
  - Wound [Not Recovered/Not Resolved]
  - Muscle strain [Not Recovered/Not Resolved]
  - Pyrexia [Unknown]
  - Skin ulcer [Recovered/Resolved]
  - Infection [Unknown]
  - Rheumatoid arthritis [Unknown]
  - Pruritus [Not Recovered/Not Resolved]
  - Erythema [Not Recovered/Not Resolved]
  - Purulent discharge [Recovered/Resolved]

NARRATIVE: CASE EVENT DATE: 2015
